FAERS Safety Report 7218806-2 (Version None)
Quarter: 2011Q1

REPORT INFORMATION
  Report Type: 
  Country: None (occurrence: None)
  Receive Date: 20110110
  Receipt Date: 20100913
  Transmission Date: 20110831
  Serious: Yes (Hospitalization)
  Sender: FDA-Public Use
  Company Number: US-ABBOTT-10P-163-0657409-00

PATIENT
  Age: 64 Year
  Sex: Female
  Weight: 125 kg

DRUGS (11)
  1. ALPRAZOLAM [Concomitant]
     Indication: ANXIETY
     Dates: start: 20071023
  2. METOPROLOL TARTRATE [Concomitant]
     Indication: PRODUCT USED FOR UNKNOWN INDICATION
     Dates: start: 20070101
  3. ZOFRAN [Concomitant]
     Indication: NAUSEA
     Dates: start: 20100511
  4. VICODIN [Suspect]
     Indication: PAIN
     Dates: start: 20100322
  5. CIPROFLAXACIN [Concomitant]
     Indication: URINARY TRACT INFECTION
     Dates: start: 20100101
  6. PROMETHAZINE [Concomitant]
     Indication: NAUSEA
     Dates: start: 20091230
  7. VICODIN [Suspect]
     Dosage: DOSE NOT CHANGED
  8. NEXAVAR [Suspect]
     Indication: METASTATIC RENAL CELL CARCINOMA
     Route: 048
     Dates: start: 20100311, end: 20100422
  9. PANTOPRAZOLE [Concomitant]
     Indication: NAUSEA
     Dates: start: 20070621
  10. LEVOTHYROXINE [Concomitant]
     Indication: PRODUCT USED FOR UNKNOWN INDICATION
     Dates: start: 20070101
  11. TRIAMTERENE AND HYDROCHLOROTHIAZIDE [Concomitant]
     Indication: PRODUCT USED FOR UNKNOWN INDICATION
     Dates: start: 20070101

REACTIONS (3)
  - CONSTIPATION [None]
  - NAUSEA [None]
  - VOMITING [None]
